FAERS Safety Report 17188968 (Version 1)
Quarter: 2019Q4

REPORT INFORMATION
  Report Type: Spontaneous
  Country: GB (occurrence: GB)
  Receive Date: 20191222
  Receipt Date: 20191222
  Transmission Date: 20200122
  Serious: Yes (Other)
  Sender: FDA-Public Use
  Company Number: GB-BAXTER-2019BAX026024

PATIENT
  Age: 45 Year
  Sex: Female

DRUGS (16)
  1. ONKOTRONE [Suspect]
     Active Substance: MITOXANTRONE HYDROCHLORIDE
     Indication: SKIN MASS
  2. 5-FLUOROURACIL [Suspect]
     Active Substance: FLUOROURACIL
     Dosage: 6 CYCLES OF CAF REGIMEN
     Route: 065
  3. DOXIL [Suspect]
     Active Substance: DOXORUBICIN HYDROCHLORIDE
     Indication: CHEST WALL TUMOUR
  4. ONKOTRONE [Suspect]
     Active Substance: MITOXANTRONE HYDROCHLORIDE
     Indication: NEOPLASM PROGRESSION
  5. TAMOXIFEN [Concomitant]
     Active Substance: TAMOXIFEN
     Indication: BREAST CANCER
     Route: 065
  6. MITOMYCIN C [Suspect]
     Active Substance: MITOMYCIN
     Indication: NEOPLASM PROGRESSION
  7. DOXIL [Suspect]
     Active Substance: DOXORUBICIN HYDROCHLORIDE
     Indication: SKIN MASS
     Dosage: 6 CYCLES OF CAF
     Route: 065
  8. METHOTREXATE. [Suspect]
     Active Substance: METHOTREXATE
     Indication: SKIN MASS
     Dosage: 4 CYCLES OF CMF REGIMEN
     Route: 065
  9. CYCLOPHOSPHAMIDE. [Suspect]
     Active Substance: CYCLOPHOSPHAMIDE
     Indication: CHEST WALL TUMOUR
     Dosage: CAF CHEMOTHERAPY 6 CYCLES
     Route: 065
  10. METHOTREXATE. [Suspect]
     Active Substance: METHOTREXATE
     Indication: NEOPLASM PROGRESSION
     Dosage: 6 CYCLES OF MMM REGIMEN
     Route: 065
     Dates: start: 199901
  11. METHOTREXATE. [Suspect]
     Active Substance: METHOTREXATE
     Indication: CHEST WALL TUMOUR
  12. ONKOTRONE [Suspect]
     Active Substance: MITOXANTRONE HYDROCHLORIDE
     Indication: CHEST WALL TUMOUR
     Dosage: 6 CYCLES OF MMM REGIMEN
     Route: 065
     Dates: start: 199901
  13. 5-FLUOROURACIL [Suspect]
     Active Substance: FLUOROURACIL
     Indication: SKIN MASS
     Dosage: 4 CYCLES OF CMF
     Route: 065
  14. CYCLOPHOSPHAMIDE. [Suspect]
     Active Substance: CYCLOPHOSPHAMIDE
     Indication: SKIN MASS
     Dosage: CMF CHEMOTHERAPY 4 CYCLES
     Route: 065
  15. MITOMYCIN C [Suspect]
     Active Substance: MITOMYCIN
     Indication: SKIN MASS
     Dosage: 6 CYCLES OF MMM
     Route: 065
     Dates: start: 199901
  16. MITOMYCIN C [Suspect]
     Active Substance: MITOMYCIN
     Indication: CHEST WALL TUMOUR

REACTIONS (1)
  - Drug ineffective [Unknown]
